FAERS Safety Report 18578763 (Version 2)
Quarter: 2021Q1

REPORT INFORMATION
  Report Type: Spontaneous
  Country: FR (occurrence: FR)
  Receive Date: 20201204
  Receipt Date: 20210305
  Transmission Date: 20210419
  Serious: Yes (Hospitalization)
  Sender: FDA-Public Use
  Company Number: FR-UCBSA-2020048143

PATIENT
  Age: 52 Year
  Sex: Male
  Weight: 74 kg

DRUGS (15)
  1. CERULYSE [Suspect]
     Active Substance: XYLENE
     Indication: CERUMEN IMPACTION
     Dosage: 3 DF DAILY
     Route: 001
     Dates: start: 20200831, end: 20200901
  2. PIPERACILLINE [PIPERACILLIN SODIUM] [Suspect]
     Active Substance: PIPERACILLIN SODIUM
     Indication: POST PROCEDURAL INFECTION
     Dosage: 12 GRAM DAILY
     Route: 042
     Dates: start: 20200828, end: 20200903
  3. TEGRETOL [Concomitant]
     Active Substance: CARBAMAZEPINE
     Indication: EPILEPSY
     Route: 048
  4. ULTRA LEVURE [Suspect]
     Active Substance: SACCHAROMYCES CEREVISIAE
     Indication: DIARRHOEA
     Dosage: 1 DOSAGE FORM DAILY
     Route: 048
     Dates: start: 20200901, end: 20200912
  5. TAZOBACTAM [Suspect]
     Active Substance: TAZOBACTAM
     Indication: POST PROCEDURAL INFECTION
     Dosage: 1500MG DAILY
     Route: 042
     Dates: start: 20200828, end: 20200903
  6. KEPPRA [Suspect]
     Active Substance: LEVETIRACETAM
     Indication: EPILEPSY
     Dosage: 2000MG DAILY
     Route: 042
     Dates: start: 20200901, end: 20200913
  7. LINEZOLIDE [Concomitant]
     Active Substance: LINEZOLID
     Indication: PRODUCT USED FOR UNKNOWN INDICATION
     Route: 042
     Dates: start: 20200828, end: 20200915
  8. BACTRIM [Suspect]
     Active Substance: SULFAMETHOXAZOLE\TRIMETHOPRIM
     Indication: POST PROCEDURAL INFECTION
     Dosage: 1600MG DAILY
     Route: 051
     Dates: start: 20200903, end: 20200910
  9. PRIMPERAN [Suspect]
     Active Substance: METOCLOPRAMIDE HYDROCHLORIDE
     Indication: PROPHYLAXIS OF NAUSEA AND VOMITING
     Dosage: 30MG DAILY
     Route: 048
     Dates: start: 20200901, end: 20200902
  10. PARACETAMOL [Concomitant]
     Active Substance: ACETAMINOPHEN
     Indication: PAIN
     Route: 048
  11. LOVENOX [LEVOFLOXACIN] [Concomitant]
     Active Substance: LEVOFLOXACIN
     Indication: THROMBOSIS PROPHYLAXIS
     Dosage: 1 DF DAILY
     Route: 058
  12. ONDANSETRON [Suspect]
     Active Substance: ONDANSETRON
     Indication: PROPHYLAXIS OF NAUSEA AND VOMITING
     Dosage: 12MG DAILY
     Route: 048
     Dates: start: 20200902, end: 20200904
  13. URBANYL [Concomitant]
     Active Substance: CLOBAZAM
     Indication: EPILEPSY
     Route: 048
  14. DEPAKINE [VALPROIC ACID] [Concomitant]
     Active Substance: VALPROIC ACID
     Indication: EPILEPSY
     Route: 048
  15. LAMICTAL [Concomitant]
     Active Substance: LAMOTRIGINE
     Indication: EPILEPSY
     Route: 048

REACTIONS (2)
  - Acute generalised exanthematous pustulosis [Recovered/Resolved]
  - Drug reaction with eosinophilia and systemic symptoms [Recovered/Resolved]

NARRATIVE: CASE EVENT DATE: 20200904
